FAERS Safety Report 14948615 (Version 4)
Quarter: 2018Q3

REPORT INFORMATION
  Report Type: Spontaneous
  Country: JP (occurrence: JP)
  Receive Date: 20180529
  Receipt Date: 20180802
  Transmission Date: 20181010
  Serious: Yes (Hospitalization, Disabling)
  Sender: FDA-Public Use
  Company Number: JP-B.I. PHARMACEUTICALS,INC./RIDGEFIELD-2018-NB-002860

PATIENT
  Age: 75 Year
  Sex: Female
  Weight: 55.2 kg

DRUGS (12)
  1. EQUMET [Concomitant]
     Active Substance: METFORMIN HYDROCHLORIDE\VILDAGLIPTIN
     Indication: PRODUCT USED FOR UNKNOWN INDICATION
     Route: 065
  2. BROTIZOLAM [Concomitant]
     Active Substance: BROTIZOLAM
     Indication: INSOMNIA
     Route: 065
  3. SULPIRIDE [Concomitant]
     Active Substance: SULPIRIDE
     Indication: DECREASED APPETITE
     Route: 065
  4. REZALTAS [Concomitant]
     Active Substance: AZELNIDIPINE\OLMESARTAN MEDOXOMIL
     Indication: PRODUCT USED FOR UNKNOWN INDICATION
     Route: 065
  5. JARDIANCE [Suspect]
     Active Substance: EMPAGLIFLOZIN
     Indication: DIABETES MELLITUS
     Route: 048
     Dates: start: 20160308
  6. NATRIX [Concomitant]
     Active Substance: INDAPAMIDE
     Indication: PRODUCT USED FOR UNKNOWN INDICATION
     Route: 065
  7. ATORVASTATIN [Concomitant]
     Active Substance: ATORVASTATIN
     Indication: PRODUCT USED FOR UNKNOWN INDICATION
     Route: 065
  8. ZOLPIDEM TARTRATE. [Concomitant]
     Active Substance: ZOLPIDEM TARTRATE
     Indication: INSOMNIA
     Route: 065
  9. GASTROM [Concomitant]
     Active Substance: ECABET SODIUM
     Indication: DECREASED APPETITE
     Route: 065
  10. BENIDIPINE HYDROCHLORIDE [Concomitant]
     Active Substance: BENIDIPINE HYDROCHLORIDE
     Indication: PRODUCT USED FOR UNKNOWN INDICATION
     Route: 065
  11. SELARA [Concomitant]
     Active Substance: EPLERENONE
     Indication: PRODUCT USED FOR UNKNOWN INDICATION
     Route: 065
  12. BISOPROLOL FUMARATE. [Concomitant]
     Active Substance: BISOPROLOL FUMARATE
     Indication: PRODUCT USED FOR UNKNOWN INDICATION
     Route: 065

REACTIONS (1)
  - Thrombotic cerebral infarction [Recovering/Resolving]

NARRATIVE: CASE EVENT DATE: 20171013
